FAERS Safety Report 4779903-4 (Version None)
Quarter: 2005Q3

REPORT INFORMATION
  Report Type: 
  Country: None (occurrence: None)
  Receive Date: 20050927
  Receipt Date: 20050920
  Transmission Date: 20060218
  Serious: Yes (Death)
  Sender: FDA-Public Use
  Company Number: 200513087FR

PATIENT
  Age: 85 Year
  Sex: Male

DRUGS (19)
  1. RIFADIN [Suspect]
     Indication: ENDOCARDITIS
     Route: 042
     Dates: start: 20050731, end: 20050809
  2. RAMIPRIL [Suspect]
     Route: 048
     Dates: end: 20050825
  3. VANCOMYCIN [Suspect]
     Indication: ENDOCARDITIS
     Route: 042
     Dates: start: 20050729, end: 20050812
  4. GENTAMICIN [Suspect]
     Indication: ENDOCARDITIS
     Route: 042
     Dates: start: 20050729, end: 20050805
  5. BACTRIM DS [Suspect]
     Indication: ENDOCARDITIS
     Route: 048
     Dates: start: 20050810, end: 20050818
  6. PRAVASTATIN [Concomitant]
     Route: 048
  7. SPECIAFOLDINE [Concomitant]
     Dates: end: 20050817
  8. FUCIDINE CAP [Concomitant]
     Indication: ENDOCARDITIS
     Dates: start: 20050812
  9. DIAMICRON [Concomitant]
     Indication: DIABETES MELLITUS
  10. XATRAL [Concomitant]
  11. ATROVENT [Concomitant]
  12. BRICANYL [Concomitant]
  13. DIGOXIN [Concomitant]
     Dates: end: 20050820
  14. CALCIPARINE [Concomitant]
  15. PYOSTACINE [Concomitant]
     Dates: start: 20050820
  16. DIPRIVAN [Concomitant]
     Dates: start: 20050823, end: 20050823
  17. ULTIVA [Concomitant]
     Dates: start: 20050823, end: 20050823
  18. PERFALGAN [Concomitant]
     Dates: start: 20050823, end: 20050823
  19. TRAMADOL HCL [Concomitant]
     Dates: start: 20050823, end: 20050823

REACTIONS (7)
  - AORTIC VALVE INCOMPETENCE [None]
  - DIALYSIS [None]
  - GLOMERULONEPHRITIS [None]
  - LUNG DISORDER [None]
  - MITRAL VALVE INCOMPETENCE [None]
  - NOSOCOMIAL INFECTION [None]
  - RENAL FAILURE ACUTE [None]
